FAERS Safety Report 7413160-5 (Version None)
Quarter: 2011Q2

REPORT INFORMATION
  Report Type: 
  Country: None (occurrence: None)
  Receive Date: 20110413
  Receipt Date: 20110404
  Transmission Date: 20111010
  Serious: Yes (Other)
  Sender: FDA-Public Use
  Company Number: US-BRISTOL-MYERS SQUIBB COMPANY-15443468

PATIENT
  Age: 42 Year
  Sex: Female

DRUGS (3)
  1. LITHIUM [Suspect]
  2. LAMICTAL [Suspect]
  3. ABILIFY [Suspect]

REACTIONS (2)
  - ABORTION SPONTANEOUS [None]
  - PREGNANCY [None]
